FAERS Safety Report 19567578 (Version 2)
Quarter: 2021Q4

REPORT INFORMATION
  Report Type: Report from Study
  Country: GB (occurrence: GB)
  Receive Date: 20210714
  Receipt Date: 20211011
  Transmission Date: 20220303
  Serious: Yes (Hospitalization, Other)
  Sender: FDA-Public Use
  Company Number: NVSC2020GB192272

PATIENT
  Age: 53 Year
  Sex: Female

DRUGS (9)
  1. KISQALI [Suspect]
     Active Substance: RIBOCICLIB
     Indication: Breast cancer
     Dosage: 600 OT
     Route: 048
     Dates: start: 20200115, end: 20200212
  2. KISQALI [Suspect]
     Active Substance: RIBOCICLIB
     Dosage: 400 MG
     Route: 048
     Dates: start: 20200115, end: 20201210
  3. KISQALI [Suspect]
     Active Substance: RIBOCICLIB
     Dosage: 600 OT
     Route: 048
     Dates: start: 20200220, end: 20200318
  4. KISQALI [Suspect]
     Active Substance: RIBOCICLIB
     Dosage: 600 OT
     Route: 048
     Dates: start: 20200326, end: 20200528
  5. KISQALI [Suspect]
     Active Substance: RIBOCICLIB
     Dosage: 600 OT
     Route: 048
     Dates: start: 20200529
  6. MOVICOL [Concomitant]
     Active Substance: POLYETHYLENE GLYCOL 3350\POTASSIUM CHLORIDE\SODIUM BICARBONATE\SODIUM CHLORIDE
     Indication: Constipation
     Dosage: UNK (2-3 SACHET)
     Route: 065
     Dates: start: 201910
  7. DOCUSATE SODIUM [Concomitant]
     Active Substance: DOCUSATE SODIUM
     Indication: Constipation
     Dosage: UNK (BID)
     Route: 065
     Dates: start: 202010
  8. CALCIUM CARBONATE [Concomitant]
     Active Substance: CALCIUM CARBONATE
     Indication: Calcium deficiency
     Dosage: UNK (BID)
     Route: 065
     Dates: start: 20191207
  9. DOMPERIDONE [Concomitant]
     Active Substance: DOMPERIDONE
     Indication: Nausea
     Dosage: 10 MG, BID
     Route: 065
     Dates: start: 20191204

REACTIONS (16)
  - Back pain [Not Recovered/Not Resolved]
  - Bone pain [Not Recovered/Not Resolved]
  - Neutropenia [Recovering/Resolving]
  - Lymphoedema [Not Recovered/Not Resolved]
  - Fatigue [Not Recovered/Not Resolved]
  - Neutrophil count decreased [Recovered/Resolved]
  - Neutrophil count decreased [Recovering/Resolving]
  - Lymphocyte count decreased [Recovered/Resolved]
  - Lymphocyte count decreased [Recovered/Resolved]
  - Lymphocyte count decreased [Recovered/Resolved]
  - Hypocalcaemia [Recovered/Resolved]
  - Blood creatinine increased [Unknown]
  - White blood cell count decreased [Recovered/Resolved]
  - White blood cell count decreased [Not Recovered/Not Resolved]
  - Nausea [Recovering/Resolving]
  - Pain in extremity [Recovering/Resolving]

NARRATIVE: CASE EVENT DATE: 20200129
